FAERS Safety Report 12913225 (Version 2)
Quarter: 2016Q4

REPORT INFORMATION
  Report Type: Spontaneous
  Country: PL (occurrence: PL)
  Receive Date: 20161104
  Receipt Date: 20161122
  Transmission Date: 20170207
  Serious: Yes (Other)
  Sender: FDA-Public Use
  Company Number: PL-ASTELLAS-2016US038594

PATIENT
  Age: 61 Year
  Sex: Female

DRUGS (3)
  1. VESICARE [Suspect]
     Active Substance: SOLIFENACIN SUCCINATE
     Indication: HYPERTONIC BLADDER
     Dosage: HALF OF 10MG TABLET, ONCE DAILY
     Route: 048
     Dates: start: 20160913, end: 20160915
  2. BIOPRAZOL [Concomitant]
     Indication: PRODUCT USED FOR UNKNOWN INDICATION
     Dosage: UNK UNK, TWICE DAILY
     Route: 048
  3. ACARD [Concomitant]
     Active Substance: ASPIRIN
     Indication: PRODUCT USED FOR UNKNOWN INDICATION
     Route: 048

REACTIONS (8)
  - Dyspnoea [Recovering/Resolving]
  - Skin burning sensation [Not Recovered/Not Resolved]
  - Intentional product misuse [Unknown]
  - Pigmentation disorder [Not Recovered/Not Resolved]
  - Urticaria [Recovered/Resolved]
  - Hypersensitivity [Not Recovered/Not Resolved]
  - Dermatitis allergic [Recovering/Resolving]
  - Pruritus [Not Recovered/Not Resolved]

NARRATIVE: CASE EVENT DATE: 20160926
